FAERS Safety Report 5474005-6 (Version None)
Quarter: 2007Q3

REPORT INFORMATION
  Report Type: 
  Country: None (occurrence: None)
  Receive Date: 20070928
  Receipt Date: 20070928
  Transmission Date: 20080115
  Serious: Yes (Other)
  Sender: FDA-Public Use
  Company Number: None

PATIENT
  Sex: Female

DRUGS (1)
  1. VENOFER [Suspect]
     Indication: ANAEMIA
     Dosage: 200MG IVP 10 MINS
     Route: 042
     Dates: start: 20070823

REACTIONS (6)
  - ARTHRALGIA [None]
  - INFUSION RELATED REACTION [None]
  - JOINT STIFFNESS [None]
  - OEDEMA PERIPHERAL [None]
  - SKIN DISCOLOURATION [None]
  - UNEVALUABLE EVENT [None]
